FAERS Safety Report 6687626-X (Version None)
Quarter: 2010Q2

REPORT INFORMATION
  Report Type: 
  Country: None (occurrence: None)
  Receive Date: 20100414
  Receipt Date: 20100330
  Transmission Date: 20101027
  Serious: Yes (Hospitalization)
  Sender: FDA-Public Use
  Company Number: 556294

PATIENT
  Age: 65 Year
  Sex: Female

DRUGS (6)
  1. OXALIPLATIN [Suspect]
     Indication: BILE DUCT CANCER
     Dosage: 7143 MG, 2 WEEK, INTRAVENOUS, (2 WEEK)
     Route: 042
     Dates: start: 20100203, end: 20100203
  2. OXALIPLATIN [Suspect]
     Indication: BILE DUCT CANCER
     Dosage: 7143 MG, 2 WEEK, INTRAVENOUS, (2 WEEK)
     Route: 042
     Dates: start: 20100224, end: 20100224
  3. GEMCITABINE HCL [Concomitant]
  4. SOLU-MEDROL [Concomitant]
  5. (ZOPHREN /00955302/) [Concomitant]
  6. PRIMPERAN /00041901/) [Concomitant]

REACTIONS (5)
  - ASTHENIA [None]
  - BLOOD PRESSURE INCREASED [None]
  - CHILLS [None]
  - HYPOXIA [None]
  - TACHYCARDIA [None]
